FAERS Safety Report 4455445-0 (Version None)
Quarter: 2004Q3

REPORT INFORMATION
  Report Type: 
  Country: None (occurrence: None)
  Receive Date: 20040917
  Receipt Date: 20040901
  Transmission Date: 20050211
  Serious: Yes (Other)
  Sender: FDA-Public Use
  Company Number: US_0409105142

PATIENT
  Sex: Male

DRUGS (7)
  1. VINBLASTINE SULFATE [Suspect]
     Indication: HODGKIN'S DISEASE
     Dosage: 6 MG/M2 OTHER
     Route: 050
  2. VINCRISTINE SULFATE [Suspect]
     Indication: HODGKIN'S DISEASE
     Dosage: 1.4 MG/M2 OTHER
     Route: 050
  3. CYCLOPHOSPHAMIDE [Concomitant]
  4. PROCARBAZINE [Concomitant]
  5. PREDNISONE [Concomitant]
  6. DOXORUBICIN [Concomitant]
  7. BLEOMYCIN [Concomitant]

REACTIONS (2)
  - AZOOSPERMIA [None]
  - TESTICULAR DISORDER [None]
